FAERS Safety Report 16751969 (Version 2)
Quarter: 2021Q3

REPORT INFORMATION
  Report Type: Spontaneous
  Country: US (occurrence: US)
  Receive Date: 20190828
  Receipt Date: 20210902
  Transmission Date: 20211014
  Serious: No
  Sender: FDA-Public Use
  Company Number: US-ENDO PHARMACEUTICALS INC-2019-104098

PATIENT
  Sex: Male
  Weight: 88 kg

DRUGS (2)
  1. PREDNISONE. [Suspect]
     Active Substance: PREDNISONE
     Indication: PAIN
     Dosage: 4 DF, DAILY
     Route: 065
     Dates: start: 20180831
  2. PREDNISONE. [Suspect]
     Active Substance: PREDNISONE
     Dosage: 3 DF, DAILY
     Route: 065
     Dates: start: 201809

REACTIONS (2)
  - Joint swelling [Unknown]
  - Pain [Unknown]
